FAERS Safety Report 9415273 (Version 1)
Quarter: 2013Q3

REPORT INFORMATION
  Report Type: Spontaneous
  Country: US (occurrence: US)
  Receive Date: 20130723
  Receipt Date: 20130723
  Transmission Date: 20140515
  Serious: Yes (Hospitalization)
  Sender: FDA-Public Use
  Company Number: US-ROCHE-1207061

PATIENT
  Age: 77 Year
  Sex: Female
  Weight: 80.81 kg

DRUGS (18)
  1. KLONOPIN [Suspect]
     Indication: PRODUCT USED FOR UNKNOWN INDICATION
     Route: 065
     Dates: end: 201207
  2. GABAPENTIN [Suspect]
     Indication: ARTHRITIS
     Route: 065
  3. GABAPENTIN [Suspect]
     Route: 065
  4. RESTASIS [Concomitant]
  5. DESYREL [Concomitant]
  6. DITROPAN [Concomitant]
  7. PRILOSEC [Concomitant]
  8. SYNTHROID [Concomitant]
  9. AMBIEN [Concomitant]
  10. AMLODIPINE [Concomitant]
  11. DITROPAN XL [Concomitant]
  12. FIORICET [Concomitant]
  13. GABAPENTIN [Concomitant]
  14. MULTIVITAMIN [Concomitant]
  15. PRILOSEC [Concomitant]
  16. RESTASIS [Concomitant]
  17. SYNTHROID [Concomitant]
  18. ULTRAM [Concomitant]

REACTIONS (14)
  - Dizziness [Recovering/Resolving]
  - Tinnitus [Recovering/Resolving]
  - Vision blurred [Unknown]
  - Abdominal pain [Unknown]
  - Diarrhoea [Unknown]
  - Dyspepsia [Unknown]
  - Chest pain [Unknown]
  - Myalgia [Unknown]
  - Arthralgia [Unknown]
  - Fatigue [Unknown]
  - Fatigue [Unknown]
  - Sinusitis [Unknown]
  - Depression [Unknown]
  - Anxiety [Unknown]
